FAERS Safety Report 24986142 (Version 1)
Quarter: 2025Q1

REPORT INFORMATION
  Report Type: Spontaneous
  Country: NO (occurrence: NO)
  Receive Date: 20250219
  Receipt Date: 20250219
  Transmission Date: 20250409
  Serious: Yes (Death, Congenital Anomaly)
  Sender: ROCHE
  Company Number: NO-ROCHE-10000210332

PATIENT
  Sex: Female

DRUGS (1)
  1. MABTHERA [Suspect]
     Active Substance: RITUXIMAB
     Indication: Product used for unknown indication
     Route: 064
     Dates: start: 20220927, end: 20230628

REACTIONS (4)
  - Trisomy 13 [Fatal]
  - Ventricular septal defect [Fatal]
  - Premature baby [Fatal]
  - Foetal exposure during pregnancy [Unknown]
